FAERS Safety Report 6432154-X (Version None)
Quarter: 2009Q4

REPORT INFORMATION
  Report Type: 
  Country: None (occurrence: None)
  Receive Date: 20091109
  Receipt Date: 20091028
  Transmission Date: 20100525
  Serious: Yes (Other)
  Sender: FDA-Public Use
  Company Number: US-SOLVAY-00209006518

PATIENT
  Age: 15263 Day
  Sex: Male
  Weight: 80 kg

DRUGS (3)
  1. HYDROCODONE [Concomitant]
     Indication: BACK PAIN
     Dosage: DAILY DOSE:  UNKNOWN
     Route: 048
     Dates: start: 20040101
  2. ANDROGEL [Suspect]
     Indication: DRUG USE FOR UNKNOWN INDICATION
     Dosage: DAILY DOSE: 5 GRAM(S), PACKET AT LUNCHTIME.
     Route: 062
     Dates: start: 20091027, end: 20091027
  3. ANDROGEL [Suspect]
     Dosage: DAILY DOSE: 5 GRAM(S), VIA PUMP.
     Route: 062
     Dates: start: 20091028

REACTIONS (2)
  - HALLUCINATION [None]
  - SLEEP DISORDER [None]
